FAERS Safety Report 15142240 (Version 1)
Quarter: 2018Q3

REPORT INFORMATION
  Report Type: Spontaneous
  Country: US (occurrence: US)
  Receive Date: 20180618
  Receipt Date: 20180618
  Transmission Date: 20181010
  Serious: Yes (Hospitalization)
  Sender: FDA-Public Use
  Company Number: None

PATIENT
  Age: 61 Year
  Sex: Female

DRUGS (29)
  1. ZANTAC [Concomitant]
     Active Substance: RANITIDINE HYDROCHLORIDE
  2. FERROUS SULF [Concomitant]
     Active Substance: FERROUS SULFATE
  3. CALCITRIOL. [Concomitant]
     Active Substance: CALCITRIOL
  4. CRANBERRY. [Concomitant]
     Active Substance: CRANBERRY
  5. GABAPENTIN. [Concomitant]
     Active Substance: GABAPENTIN
  6. VITAMIN B1 [Concomitant]
     Active Substance: THIAMINE HYDROCHLORIDE
  7. CITRUCEL [Concomitant]
     Active Substance: METHYLCELLULOSE (4000 MPA.S)
  8. MULTI?VITAMIN [Concomitant]
     Active Substance: .ALPHA.-TOCOPHEROL ACETATE, DL-\ASCORBIC ACID\CYANOCOBALAMIN\FLUORIDE ION\FOLIC ACID\NIACIN\PYRIDOXINE\RIBOFLAVIN\THIAMINE\VITAMIN A\VITAMIN D
  9. VITAMIN E [Concomitant]
     Active Substance: .ALPHA.-TOCOPHEROL
  10. MEKINIST [Suspect]
     Active Substance: TRAMETINIB DIMETHYL SULFOXIDE
     Indication: PLASMA CELL MYELOMA
     Route: 048
  11. VITAMIN D3 [Concomitant]
     Active Substance: CHOLECALCIFEROL
  12. TAFINLAR [Suspect]
     Active Substance: DABRAFENIB MESYLATE
     Indication: PLASMA CELL MYELOMA
     Route: 048
  13. CARTIA XT [Concomitant]
     Active Substance: DILTIAZEM HYDROCHLORIDE
  14. MIRALAX [Concomitant]
     Active Substance: POLYETHYLENE GLYCOL 3350
  15. ORENITRAM [Concomitant]
     Active Substance: TREPROSTINIL
  16. PROBIOTIC [Concomitant]
     Active Substance: PROBIOTICS NOS
  17. TRACLEER [Concomitant]
     Active Substance: BOSENTAN
  18. NIACIN. [Concomitant]
     Active Substance: NIACIN
  19. ASPIRIN. [Concomitant]
     Active Substance: ASPIRIN
  20. POT CHLORIDE [Concomitant]
     Active Substance: POTASSIUM CHLORIDE
  21. HUMALOG JR [Concomitant]
  22. SODIUM BICAR [Concomitant]
  23. CIPRO HC [Concomitant]
     Active Substance: CIPROFLOXACIN HYDROCHLORIDE\HYDROCORTISONE
  24. ULORIC [Concomitant]
     Active Substance: FEBUXOSTAT
  25. PROMACTA [Concomitant]
     Active Substance: ELTROMBOPAG OLAMINE
  26. PRAVASTATIN. [Concomitant]
     Active Substance: PRAVASTATIN
  27. ROPINIROLE. [Concomitant]
     Active Substance: ROPINIROLE
  28. PROLIA [Concomitant]
     Active Substance: DENOSUMAB
  29. TORSEMIDE. [Concomitant]
     Active Substance: TORSEMIDE

REACTIONS (1)
  - Pain [None]

NARRATIVE: CASE EVENT DATE: 20180601
